FAERS Safety Report 4449473-9 (Version None)
Quarter: 2004Q3

REPORT INFORMATION
  Report Type: 
  Country: None (occurrence: None)
  Receive Date: 20040910
  Receipt Date: 20040910
  Transmission Date: 20050211
  Serious: Yes (Hospitalization, Other)
  Sender: FDA-Public Use
  Company Number: None

PATIENT
  Age: 53 Year
  Sex: Female
  Weight: 95 kg

DRUGS (1)
  1. ARALAST  60 MG/KG Q WK  BAXTER [Suspect]
     Indication: ALPHA-1 ANTI-TRYPSIN DEFICIENCY
     Dosage: 60 MG/KG +/- 5% PIV Q WEEK
     Dates: start: 20040814

REACTIONS (1)
  - DEEP VEIN THROMBOSIS [None]
